FAERS Safety Report 11820425 (Version 1)
Quarter: 2015Q4

REPORT INFORMATION
  Report Type: Spontaneous
  Country: US (occurrence: US)
  Receive Date: 20151210
  Receipt Date: 20151210
  Transmission Date: 20160305
  Serious: Yes (Hospitalization)
  Sender: FDA-Public Use
  Company Number: US-SA-2015SA201968

PATIENT
  Age: 50 Year
  Sex: Male

DRUGS (4)
  1. PYRAZINAMIDE. [Suspect]
     Active Substance: PYRAZINAMIDE
     Indication: TUBERCULOSIS
     Route: 065
  2. ISONIAZID. [Suspect]
     Active Substance: ISONIAZID
     Indication: TUBERCULOSIS
     Route: 065
  3. ETHAMBUTOL [Suspect]
     Active Substance: ETHAMBUTOL HYDROCHLORIDE
     Indication: TUBERCULOSIS
     Route: 065
  4. RIFAMPICIN [Suspect]
     Active Substance: RIFAMPIN
     Indication: TUBERCULOSIS
     Route: 065

REACTIONS (16)
  - Leukocytosis [Unknown]
  - Pyrexia [Unknown]
  - Ejection fraction decreased [Recovered/Resolved]
  - Anaemia [Unknown]
  - Type III immune complex mediated reaction [Unknown]
  - Abdominal pain [Unknown]
  - Hypocomplementaemia [Recovered/Resolved]
  - Glomerulonephritis [Recovered/Resolved]
  - Inflammatory marker increased [Unknown]
  - Pancytopenia [Recovered/Resolved]
  - Hepatic failure [Recovering/Resolving]
  - Hepatic enzyme abnormal [Recovered/Resolved]
  - Renal failure [Recovered/Resolved]
  - Tubulointerstitial nephritis [Recovered/Resolved]
  - Pain [Unknown]
  - Thrombocytopenia [Recovered/Resolved]
